FAERS Safety Report 4929928-0 (Version None)
Quarter: 2006Q1

REPORT INFORMATION
  Report Type: 
  Country: None (occurrence: None)
  Receive Date: 20060301
  Receipt Date: 20060220
  Transmission Date: 20060701
  Serious: Yes (Other)
  Sender: FDA-Public Use
  Company Number: US-AVENTIS-200611713US

PATIENT
  Sex: Female
  Weight: 75 kg

DRUGS (14)
  1. LANTUS [Suspect]
     Indication: DIABETES MELLITUS NON-INSULIN-DEPENDENT
     Dosage: DOSE UNIT: UNITS
     Dates: start: 20050101, end: 20060221
  2. LANTUS [Suspect]
     Dosage: DOSE UNIT: UNITS
     Dates: start: 20060221
  3. ECONOPRED [Suspect]
     Indication: INTRAOCULAR PRESSURE INCREASED
     Route: 047
     Dates: start: 20060101, end: 20060101
  4. PREDNISOLONE 1% [Suspect]
     Indication: INTRAOCULAR PRESSURE INCREASED
     Route: 047
     Dates: start: 20060101, end: 20060221
  5. HUMALOG [Concomitant]
     Indication: DIABETES MELLITUS NON-INSULIN-DEPENDENT
     Dosage: DOSE: UNK
  6. ACTOS [Concomitant]
     Indication: DIABETES MELLITUS NON-INSULIN-DEPENDENT
  7. TRICOR [Concomitant]
     Indication: BLOOD CHOLESTEROL
  8. NEXIUM [Concomitant]
     Indication: GASTROOESOPHAGEAL REFLUX DISEASE
  9. LORAZEPAM [Concomitant]
     Indication: SLEEP DISORDER
  10. TOPROL-XL [Concomitant]
     Indication: BLOOD PRESSURE
  11. TRAZODONE [Concomitant]
     Indication: DEPRESSION
  12. CELEBREX [Concomitant]
     Indication: ARTHRITIS
  13. ANTIDEPRESSANTS [Concomitant]
     Indication: DEPRESSION
  14. AVALIDE [Concomitant]
     Indication: BLOOD PRESSURE
     Dosage: DOSE: 300/12.5

REACTIONS (5)
  - BLOOD GLUCOSE INCREASED [None]
  - CATARACT [None]
  - INTRAOCULAR PRESSURE INCREASED [None]
  - SUPERFICIAL INJURY OF EYE [None]
  - VISUAL ACUITY REDUCED [None]
